FAERS Safety Report 12875775 (Version 1)
Quarter: 2016Q4

REPORT INFORMATION
  Report Type: Spontaneous
  Country: NL (occurrence: NL)
  Receive Date: 20161024
  Receipt Date: 20161024
  Transmission Date: 20170207
  Serious: Yes (Other)
  Sender: FDA-Public Use
  Company Number: NL-AUROBINDO-AUR-APL-2016-13001

PATIENT
  Age: 23 Year
  Sex: Female

DRUGS (1)
  1. PREDNISONE. [Suspect]
     Active Substance: PREDNISONE
     Indication: PRODUCT USED FOR UNKNOWN INDICATION
     Dosage: 40-60 MG
     Route: 065

REACTIONS (5)
  - Pyrexia [Unknown]
  - Night sweats [Unknown]
  - Pleurisy [Unknown]
  - Lethargy [Unknown]
  - Histoplasmosis disseminated [Unknown]
